FAERS Safety Report 9967294 (Version 2)
Quarter: 2014Q1

REPORT INFORMATION
  Report Type: Report from Study
  Country: US (occurrence: US)
  Receive Date: 20140305
  Receipt Date: 20140305
  Transmission Date: 20141002
  Serious: No
  Sender: FDA-Public Use
  Company Number: US-ABBVIE-13P-163-1113515-00

PATIENT
  Age: 57 Year
  Sex: Female
  Weight: 59.47 kg

DRUGS (2)
  1. HUMIRA [Suspect]
     Indication: COLITIS ULCERATIVE
     Dosage: LOADING DOSES THEN EVERY OTHER WEEK
     Dates: start: 20130416, end: 20130613
  2. SULFASALAZINE [Concomitant]
     Indication: ARTHRITIS

REACTIONS (2)
  - Drug ineffective [Not Recovered/Not Resolved]
  - Colitis ulcerative [Not Recovered/Not Resolved]
